FAERS Safety Report 20263721 (Version 1)
Quarter: 2021Q4

REPORT INFORMATION
  Report Type: Spontaneous
  Country: US (occurrence: US)
  Receive Date: 20211231
  Receipt Date: 20211231
  Transmission Date: 20220303
  Serious: Yes (Other)
  Sender: FDA-Public Use
  Company Number: US-TEVA-2021-US-1992839

PATIENT
  Age: 27 Year
  Sex: Female

DRUGS (1)
  1. COPAXONE [Suspect]
     Active Substance: GLATIRAMER ACETATE
     Indication: Multiple sclerosis
     Dosage: FORM STRENGTH-UNKNOWN
     Dates: start: 1981

REACTIONS (7)
  - Loss of consciousness [Unknown]
  - Road traffic accident [Unknown]
  - Craniocerebral injury [Unknown]
  - Fall [Unknown]
  - Living in residential institution [Unknown]
  - Walking aid user [Unknown]
  - Head injury [Unknown]

NARRATIVE: CASE EVENT DATE: 19810101
